FAERS Safety Report 8159714 (Version 4)
Quarter: 2012Q4

REPORT INFORMATION
  Report Type: 
  Country: US (occurrence: US)
  Receive Date: 20110928
  Receipt Date: 20121115
  Transmission Date: 20130627
  Serious: Yes (Hospitalization, Other)
  Sender: FDA-Public Use
  Company Number: US-BAYER-2011-088338

PATIENT
  Age: 38 Year
  Sex: Female
  Weight: 122 kg

DRUGS (12)
  1. YAZ [Suspect]
     Indication: PREMENSTRUAL SYNDROME
     Dosage: UNK
     Route: 048
     Dates: start: 2009, end: 2009
  2. ACETAMINOPHEN [Concomitant]
     Indication: PAIN
     Dosage: 5 mg/500mg, QID
     Route: 048
     Dates: start: 20090903, end: 20090910
  3. HYDROCODONE W/APAP [Concomitant]
     Dosage: UNK
     Route: 048
     Dates: start: 20090905
  4. LEVAQUIN [Concomitant]
     Dosage: 500 mg, UNK
     Route: 048
     Dates: start: 20090905
  5. METRONIDAZOLE [Concomitant]
     Dosage: 500 mg, BID
     Route: 048
     Dates: start: 20090905
  6. TRAZODONE [Concomitant]
     Indication: SLEEP DISORDER NOS
     Dosage: 150 mg, HS
     Route: 048
     Dates: start: 20090730
  7. CICLOPIROX [Concomitant]
     Dosage: UNK
     Route: 061
     Dates: start: 20090808
  8. BUDEPRION [Concomitant]
     Dosage: 150 mg, UNK
     Route: 048
     Dates: start: 20090811
  9. FAMOTIDINE [Concomitant]
     Dosage: 20mg, QD
     Route: 048
     Dates: start: 20090903
  10. CLONIDINE [Concomitant]
  11. ATIVAN [Concomitant]
  12. ALPRAZOLAM [Concomitant]
     Dosage: 1 mg, TID PRN
     Route: 048

REACTIONS (5)
  - Cholecystitis acute [None]
  - Gallbladder non-functioning [None]
  - Pain [None]
  - Injury [None]
  - Off label use [None]
